FAERS Safety Report 6452967-8 (Version None)
Quarter: 2009Q4

REPORT INFORMATION
  Report Type: 
  Country: None (occurrence: None)
  Receive Date: 20091124
  Receipt Date: 20091110
  Transmission Date: 20100525
  Serious: Yes (Other)
  Sender: FDA-Public Use
  Company Number: PHHY2009DE45029

PATIENT
  Sex: Female
  Weight: 65 kg

DRUGS (1)
  1. TERBINAFINE HCL [Suspect]
     Indication: ONYCHOMYCOSIS
     Dosage: 1 DF, QD
     Route: 048
     Dates: start: 20090814, end: 20090913

REACTIONS (6)
  - AGEUSIA [None]
  - DECREASED APPETITE [None]
  - DYSPEPSIA [None]
  - MENTAL DISORDER [None]
  - NERVOUSNESS [None]
  - WEIGHT DECREASED [None]
